FAERS Safety Report 21345709 (Version 1)
Quarter: 2022Q3

REPORT INFORMATION
  Report Type: Report from Study
  Country: US (occurrence: None)
  Receive Date: 20220916
  Receipt Date: 20220916
  Transmission Date: 20221026
  Serious: Yes (Other)
  Sender: FDA-Public Use
  Company Number: 2022A006674

PATIENT
  Sex: Male
  Weight: 22.2 kg

DRUGS (4)
  1. KOSELUGO [Suspect]
     Active Substance: SELUMETINIB
     Indication: Nervous system neoplasm benign
     Route: 048
     Dates: start: 20211125
  2. MIRALAX [Concomitant]
     Active Substance: POLYETHYLENE GLYCOL 3350
  3. ZOFRAN [Concomitant]
     Active Substance: ONDANSETRON HYDROCHLORIDE
  4. TYLENOL [Concomitant]
     Active Substance: ACETAMINOPHEN

REACTIONS (2)
  - Large intestinal obstruction [Unknown]
  - Diarrhoea [Unknown]
